FAERS Safety Report 17485935 (Version 3)
Quarter: 2020Q1

REPORT INFORMATION
  Report Type: Spontaneous
  Country: JP (occurrence: JP)
  Receive Date: 20200303
  Receipt Date: 20200321
  Transmission Date: 20200409
  Serious: Yes (Other)
  Sender: FDA-Public Use
  Company Number: JP-AMGEN-JPNNI2020034389

PATIENT
  Age: 24 Year

DRUGS (2)
  1. BLINCYTO [Suspect]
     Active Substance: BLINATUMOMAB
     Dosage: 9 MICROGRAM, QD
     Route: 041
     Dates: start: 20200302
  2. BLINCYTO [Suspect]
     Active Substance: BLINATUMOMAB
     Indication: ACUTE LYMPHOCYTIC LEUKAEMIA RECURRENT
     Dosage: 9 MICROGRAM, QD
     Route: 041
     Dates: start: 20200225, end: 20200226

REACTIONS (3)
  - Disseminated intravascular coagulation [Recovered/Resolved]
  - Infusion site haemorrhage [Not Recovered/Not Resolved]
  - Cytokine release syndrome [Unknown]

NARRATIVE: CASE EVENT DATE: 20200225
